FAERS Safety Report 17918905 (Version 2)
Quarter: 2020Q3

REPORT INFORMATION
  Report Type: Spontaneous
  Country: US (occurrence: US)
  Receive Date: 20200619
  Receipt Date: 20200729
  Transmission Date: 20201103
  Serious: No
  Sender: FDA-Public Use
  Company Number: US-PFIZER INC-2020212683

PATIENT
  Age: 58 Year
  Sex: Female
  Weight: 83.46 kg

DRUGS (4)
  1. SKELAXIN [Suspect]
     Active Substance: METAXALONE
     Indication: FIBROMYALGIA
     Dosage: 800 MG, 3X/DAY (EVERY 8 HOURS)
     Route: 048
     Dates: start: 2005
  2. GABAPENTIN. [Concomitant]
     Active Substance: GABAPENTIN
     Indication: FIBROMYALGIA
     Dosage: 300 MG, 3X/DAY
     Dates: start: 2019
  3. FLEXERIL [Concomitant]
     Active Substance: CYCLOBENZAPRINE HYDROCHLORIDE
     Indication: PAIN
     Dosage: 10 MG, 3X/DAY
     Dates: end: 2005
  4. ULTRAM [Concomitant]
     Active Substance: TRAMADOL HYDROCHLORIDE
     Indication: FIBROMYALGIA
     Dosage: 50 MG
     Dates: start: 2000, end: 201906

REACTIONS (6)
  - Insomnia [Unknown]
  - Product use in unapproved indication [Unknown]
  - Off label use [Unknown]
  - Migraine [Unknown]
  - Fibromyalgia [Unknown]
  - Expired product administered [Unknown]

NARRATIVE: CASE EVENT DATE: 2005
